FAERS Safety Report 8134315-0 (Version None)
Quarter: 2012Q1

REPORT INFORMATION
  Report Type: 
  Country: None (occurrence: None)
  Receive Date: 20120210
  Receipt Date: 20120126
  Transmission Date: 20120608
  Serious: Yes (Hospitalization)
  Sender: FDA-Public Use
  Company Number: 2010AT000068

PATIENT
  Sex: Male

DRUGS (3)
  1. ANTIHYPERTENSIVES [Concomitant]
  2. ALPROSTADIL [Suspect]
     Indication: PRODUCT USED FOR UNKNOWN INDICATION
     Dosage: 10 UG;1X 20 UG; 10 UG; 12.5 UG
     Dates: start: 20020101
  3. CHOLESTEROL- AND TRIGLYCERIDE REDUCERS [Concomitant]

REACTIONS (6)
  - ATRIAL FIBRILLATION [None]
  - THERAPY REGIMEN CHANGED [None]
  - DEVICE FAILURE [None]
  - OVERDOSE [None]
  - PRIAPISM [None]
  - DRUG INEFFECTIVE [None]
